FAERS Safety Report 24016847 (Version 1)
Quarter: 2024Q2

REPORT INFORMATION
  Report Type: Spontaneous
  Country: TW (occurrence: TW)
  Receive Date: 20240626
  Receipt Date: 20240626
  Transmission Date: 20240715
  Serious: Yes (Other)
  Sender: FDA-Public Use
  Company Number: TW-MEITHEAL-2024MPLIT00185

PATIENT
  Age: 39 Year
  Sex: Female

DRUGS (9)
  1. CARBOPLATIN [Suspect]
     Active Substance: CARBOPLATIN
     Indication: Ovarian cancer stage III
     Dosage: AUC 6 ON DAY 1
     Route: 033
     Dates: start: 201602
  2. CARBOPLATIN [Suspect]
     Active Substance: CARBOPLATIN
     Indication: Endometrial cancer stage I
  3. CARBOPLATIN [Suspect]
     Active Substance: CARBOPLATIN
     Indication: Metastases to peritoneum
  4. PACLITAXEL [Concomitant]
     Active Substance: PACLITAXEL
     Dosage: DAYS 1 AND 15 TWO CYCLES
     Route: 042
     Dates: start: 201602
  5. PACLITAXEL [Concomitant]
     Active Substance: PACLITAXEL
  6. PACLITAXEL [Concomitant]
     Active Substance: PACLITAXEL
     Indication: Metastases to peritoneum
  7. DOXORUBICIN HYDROCHLORIDE [Concomitant]
     Active Substance: DOXORUBICIN HYDROCHLORIDE
     Dosage: SUBSEQUENT SIX CYCLES
     Route: 042
  8. DOXORUBICIN HYDROCHLORIDE [Concomitant]
     Active Substance: DOXORUBICIN HYDROCHLORIDE
  9. DOXORUBICIN HYDROCHLORIDE [Concomitant]
     Active Substance: DOXORUBICIN HYDROCHLORIDE
     Indication: Metastases to peritoneum

REACTIONS (1)
  - Anaphylactic shock [Recovered/Resolved]
